FAERS Safety Report 5278749-0 (Version None)
Quarter: 2007Q1

REPORT INFORMATION
  Report Type: 
  Country: None (occurrence: None)
  Receive Date: 20061213
  Receipt Date: 20060213
  Transmission Date: 20070707
  Serious: Yes (Hospitalization)
  Sender: FDA-Public Use
  Company Number: 2006AC00282

PATIENT
  Age: 46 Year
  Sex: Male

DRUGS (5)
  1. QUETIAPINE FUMARATE [Suspect]
     Indication: DEPRESSION
     Dosage: 800 MG DAILY PO
     Route: 048
  2. QUETIAPINE FUMARATE [Suspect]
     Indication: PSYCHOTIC DISORDER
     Dosage: 800 MG DAILY PO
     Route: 048
  3. AMPHETAMINE [Suspect]
  4. MIRTAZAPINE [Concomitant]
  5. PANTOPRAZOLE [Concomitant]

REACTIONS (1)
  - PRIAPISM [None]
